FAERS Safety Report 14899854 (Version 1)
Quarter: 2018Q2

REPORT INFORMATION
  Report Type: Spontaneous
  Country: DE (occurrence: DE)
  Receive Date: 20180516
  Receipt Date: 20180516
  Transmission Date: 20180711
  Serious: Yes (Other)
  Sender: FDA-Public Use
  Company Number: DE-ROCHE-2123943

PATIENT
  Sex: Male

DRUGS (2)
  1. MABTHERA [Suspect]
     Active Substance: RITUXIMAB
     Indication: AUTOIMMUNE NEUROPATHY
     Dosage: ONCE
     Route: 042
     Dates: start: 20180323
  2. MABTHERA [Suspect]
     Active Substance: RITUXIMAB
     Dosage: ONCE
     Route: 042
     Dates: start: 20180406

REACTIONS (3)
  - Autoimmune neuropathy [Not Recovered/Not Resolved]
  - Intentional product use issue [Unknown]
  - Off label use [Unknown]

NARRATIVE: CASE EVENT DATE: 20180323
